FAERS Safety Report 11810266 (Version 1)
Quarter: 2015Q4

REPORT INFORMATION
  Report Type: Spontaneous
  Country: ES (occurrence: ES)
  Receive Date: 20151208
  Receipt Date: 20151208
  Transmission Date: 20160305
  Serious: Yes (Death, Hospitalization)
  Sender: FDA-Public Use
  Company Number: ES-MYLANLABS-2015M1043398

PATIENT

DRUGS (2)
  1. CAPECITABINE. [Suspect]
     Active Substance: CAPECITABINE
     Indication: ADENOCARCINOMA OF COLON
     Dosage: SCHEDULED ON DAY 1-14
     Route: 065
  2. OXALIPLATIN. [Suspect]
     Active Substance: OXALIPLATIN
     Indication: ADENOCARCINOMA OF COLON
     Dosage: 130 MG/M2 IN 2 HOURS, RECEIVED ON DAY 1.
     Route: 065

REACTIONS (14)
  - Respiratory tract infection [Unknown]
  - Nausea [Unknown]
  - Glomerulonephritis proliferative [Fatal]
  - Haematotoxicity [Fatal]
  - Cardiac failure congestive [Unknown]
  - Encephalopathy [Recovered/Resolved with Sequelae]
  - Urinary tract infection enterococcal [Unknown]
  - Toxicity to various agents [Fatal]
  - Gastrointestinal toxicity [Unknown]
  - Hypertensive crisis [Unknown]
  - Vomiting [Unknown]
  - Bacteraemia [Unknown]
  - Pleural effusion [Unknown]
  - Pneumonia [Fatal]
